FAERS Safety Report 8680332 (Version 2)
Quarter: 2013Q4

REPORT INFORMATION
  Report Type: Report from Study
  Country: US (occurrence: US)
  Receive Date: 20120724
  Receipt Date: 20131217
  Transmission Date: 20140711
  Serious: Yes (Death)
  Sender: FDA-Public Use
  Company Number: US-ACTELION-A-US2012-68623

PATIENT
  Age: 59 Year
  Sex: Female

DRUGS (15)
  1. TRACLEER [Suspect]
     Indication: PULMONARY ARTERIAL HYPERTENSION
     Dosage: UNK
     Route: 048
     Dates: end: 20120707
  2. WELLBUTRIN [Concomitant]
  3. BUMEX [Concomitant]
  4. VOLTAREN [Concomitant]
  5. DIGOXIN [Concomitant]
  6. FLOLAN [Concomitant]
  7. LEVOTHYROXINE [Concomitant]
  8. PROZAC [Concomitant]
  9. ATIVAN [Concomitant]
  10. ZAROXOLYN [Concomitant]
  11. PERCOCET [Concomitant]
  12. K-DUR [Concomitant]
  13. REVATIO [Concomitant]
  14. ALDACTONE [Concomitant]
  15. COUMADIN [Concomitant]

REACTIONS (1)
  - Death [Fatal]
